FAERS Safety Report 5817598-9 (Version None)
Quarter: 2008Q3

REPORT INFORMATION
  Report Type: 
  Country: None (occurrence: None)
  Receive Date: 20080716
  Receipt Date: 20080630
  Transmission Date: 20090109
  Serious: Yes (Life-Threatening, Hospitalization)
  Sender: FDA-Public Use
  Company Number: DSA_32089_2008

PATIENT
  Sex: Female

DRUGS (1)
  1. MONO-TILDIEM (MONO-TILDIEM - DILTIAZEM HYDROCHLORIDE) 300 MG (NOT SPEC [Suspect]
     Dosage: (16800 MG 1X ORAL)
     Route: 048
     Dates: start: 20080520, end: 20080520

REACTIONS (9)
  - CARDIOGENIC SHOCK [None]
  - HAEMODYNAMIC INSTABILITY [None]
  - HEPATOCELLULAR INJURY [None]
  - INTENTIONAL OVERDOSE [None]
  - MULTI-ORGAN FAILURE [None]
  - NERVOUS SYSTEM DISORDER [None]
  - PERIPHERAL ISCHAEMIA [None]
  - RENAL FAILURE [None]
  - THROMBOSIS [None]
